FAERS Safety Report 22352325 (Version 2)
Quarter: 2023Q2

REPORT INFORMATION
  Report Type: Report from Study
  Country: US (occurrence: US)
  Receive Date: 20230522
  Receipt Date: 20230529
  Transmission Date: 20230721
  Serious: No
  Sender: FDA-Public Use
  Company Number: US-002147023-NVSC2023US113743

PATIENT
  Sex: Female

DRUGS (1)
  1. COSENTYX [Suspect]
     Active Substance: SECUKINUMAB
     Indication: Psoriasis
     Dosage: 300 MG (1, 2, 3, 4, 5 LOADING DOSES)
     Route: 058
     Dates: start: 20230403

REACTIONS (4)
  - Pain in extremity [Recovering/Resolving]
  - Gait disturbance [Unknown]
  - Back pain [Unknown]
  - Movement disorder [Unknown]
